FAERS Safety Report 21680233 (Version 3)
Quarter: 2025Q4

REPORT INFORMATION
  Report Type: Report from Study
  Country: JP (occurrence: JP)
  Receive Date: 20221205
  Receipt Date: 20251210
  Transmission Date: 20260117
  Serious: Yes (Hospitalization, Other)
  Sender: BIOGEN
  Company Number: JP-BIOGEN-2020BI00961728

PATIENT
  Age: 61 Year
  Sex: Female
  Weight: 47 kg

DRUGS (13)
  1. SPINRAZA [Suspect]
     Active Substance: NUSINERSEN
     Indication: Spinal muscular atrophy
  2. SPINRAZA [Suspect]
     Active Substance: NUSINERSEN
  3. SPINRAZA [Suspect]
     Active Substance: NUSINERSEN
     Dates: start: 20210113
  4. METGLUCO [Concomitant]
     Active Substance: METFORMIN HYDROCHLORIDE
     Indication: Diabetes mellitus
     Dosage: DOSAGE TEXT:TOTAL DAILY DOSE: 500-1000 MG
  5. METGLUCO [Concomitant]
     Active Substance: METFORMIN HYDROCHLORIDE
  6. VILDAGLIPTIN [Concomitant]
     Active Substance: VILDAGLIPTIN
     Indication: Diabetes mellitus
  7. MIGLITOL OD [Concomitant]
     Indication: Diabetes mellitus
  8. TELTHIA [Concomitant]
  9. TELTHIA [Concomitant]
     Indication: Hypertension
     Dates: start: 202206, end: 202406
  10. HYALURONATE SODIUM [Concomitant]
     Active Substance: HYALURONATE SODIUM
     Indication: Prophylaxis
     Dosage: DOSAGE TEXT:AS NEEDED?ROA: OPHTHALMIC
  11. LIDOCAINE [Concomitant]
     Active Substance: LIDOCAINE
     Indication: Anaesthesia procedure
     Dosage: FREQUENCY TEXT:AT EACH SPINRAZA ADMINISTRATION
  12. XYLOCAINE [Concomitant]
     Active Substance: LIDOCAINE HYDROCHLORIDE
     Indication: Anaesthesia procedure
     Dosage: FREQUENCY TEXT:AT EACH SPINRAZA ADMINISTRATION
  13. VONOPRAZAN FUMARATE [Concomitant]
     Active Substance: VONOPRAZAN FUMARATE
     Dosage: 10 MG/DAY

REACTIONS (30)
  - Chest pain [Recovered/Resolved]
  - Malaise [Recovered/Resolved]
  - Off label use [Unknown]
  - Therapeutic response shortened [Unknown]
  - Cystitis [Recovered/Resolved]
  - Diabetes mellitus [Recovered/Resolved]
  - Hypertension [Recovered/Resolved]
  - Oesophagitis [Recovered/Resolved]
  - Headache [Recovered/Resolved]
  - Decubitus ulcer [Recovered/Resolved]
  - Pyrexia [Recovered/Resolved]
  - Neuropathy peripheral [Not Recovered/Not Resolved]
  - Gastrooesophageal reflux disease [Not Recovered/Not Resolved]
  - Diverticulum intestinal [Not Recovered/Not Resolved]
  - Renal cyst [Not Recovered/Not Resolved]
  - Back pain [Recovered/Resolved]
  - Conjunctivitis allergic [Recovered/Resolved]
  - Procedural site reaction [Unknown]
  - Pyrexia [Unknown]
  - Fatigue [Unknown]
  - Rash [Recovered/Resolved]
  - Urinary tract infection [Recovered/Resolved]
  - Dizziness [Recovered/Resolved]
  - Tinea infection [Not Recovered/Not Resolved]
  - Diarrhoea [Recovered/Resolved]
  - Gastritis [Recovered/Resolved]
  - Conjunctivitis [Recovered/Resolved]
  - Tinea infection [Recovered/Resolved]
  - Hypoaesthesia [Recovered/Resolved]
  - Headache [Recovered/Resolved]

NARRATIVE: CASE EVENT DATE: 20200819
